FAERS Safety Report 21831895 (Version 1)
Quarter: 2023Q1

REPORT INFORMATION
  Report Type: Spontaneous
  Country: US (occurrence: None)
  Receive Date: 20230106
  Receipt Date: 20230106
  Transmission Date: 20230417
  Serious: Yes (Death)
  Sender: FDA-Public Use
  Company Number: None

PATIENT
  Age: 88 Year
  Sex: Male
  Weight: 63.96 kg

DRUGS (15)
  1. TAFINLAR [Suspect]
     Active Substance: DABRAFENIB MESYLATE
     Indication: Lung carcinoma cell type unspecified stage 0
     Dosage: FREQUENCY : DAILY;?
     Route: 048
  2. MEKINIST [Suspect]
     Active Substance: TRAMETINIB DIMETHYL SULFOXIDE
  3. ALBUTEROL SULFATE INHALATION [Concomitant]
  4. ALPRAZOLAM [Concomitant]
  5. CLOPIDOGREL BISULFATE [Concomitant]
  6. FINASTERIDE [Concomitant]
  7. GLIPIZIDE [Concomitant]
  8. IPRATROPIUM BROMIDE [Concomitant]
  9. MEGESTROL ACETATE [Concomitant]
  10. OLMESARTAN [Concomitant]
  11. ONDANSETRON [Concomitant]
  12. ROSUVASTATIN [Concomitant]
  13. TAMSULOSIN [Concomitant]
  14. VITAMIN D3 [Concomitant]
  15. ZOLPIDEM [Concomitant]

REACTIONS (1)
  - Death [None]
